FAERS Safety Report 10926526 (Version 2)
Quarter: 2015Q2

REPORT INFORMATION
  Report Type: Spontaneous
  Country: US (occurrence: US)
  Receive Date: 20150318
  Receipt Date: 20150615
  Transmission Date: 20150821
  Serious: No
  Sender: FDA-Public Use
  Company Number: US-009507513-1503USA005602

PATIENT
  Sex: Female

DRUGS (1)
  1. NUVARING [Suspect]
     Active Substance: ETHINYL ESTRADIOL\ETONOGESTREL
     Dosage: STRENGTH: 0.12/0.015/24 MG
     Route: 067
     Dates: start: 20131202, end: 2015

REACTIONS (3)
  - Vulvovaginal discomfort [Unknown]
  - Product quality issue [Unknown]
  - Device expulsion [Unknown]
